FAERS Safety Report 10210045 (Version 1)
Quarter: 2014Q2

REPORT INFORMATION
  Report Type: Spontaneous
  Country: JP (occurrence: JP)
  Receive Date: 20140602
  Receipt Date: 20140602
  Transmission Date: 20141212
  Serious: Yes (Death, Other)
  Sender: FDA-Public Use
  Company Number: JP-ASTELLAS-2014JP007771AA

PATIENT
  Age: 53 Year
  Sex: Female

DRUGS (4)
  1. PROGRAF [Suspect]
     Indication: PROPHYLAXIS AGAINST GRAFT VERSUS HOST DISEASE
     Route: 065
  2. METHOTREXATE [Concomitant]
     Indication: PROPHYLAXIS AGAINST GRAFT VERSUS HOST DISEASE
     Route: 065
  3. PREDNISOLONE [Concomitant]
     Indication: CHRONIC GRAFT VERSUS HOST DISEASE IN SKIN
     Route: 065
  4. CYCLOSPORINE [Concomitant]
     Indication: CHRONIC GRAFT VERSUS HOST DISEASE IN SKIN
     Route: 065

REACTIONS (3)
  - Tongue carcinoma stage I [Fatal]
  - Chronic graft versus host disease in skin [Unknown]
  - Drug ineffective [Unknown]
